FAERS Safety Report 16042508 (Version 1)
Quarter: 2019Q2

REPORT INFORMATION
  Report Type: Spontaneous
  Country: US (occurrence: US)
  Receive Date: 20190306
  Receipt Date: 20190306
  Transmission Date: 20190711
  Serious: Yes (Hospitalization)
  Sender: FDA-Public Use
  Company Number: None

PATIENT
  Age: 59 Year
  Sex: Male
  Weight: 53.5 kg

DRUGS (1)
  1. EMEND [Suspect]
     Active Substance: APREPITANT
     Indication: SMALL CELL LUNG CANCER
     Dosage: ?          OTHER FREQUENCY:ONCE (PRE-CHEMO);?
     Route: 041
     Dates: start: 20190226, end: 20190305

REACTIONS (4)
  - Infusion site erythema [None]
  - Infusion site swelling [None]
  - Pruritus [None]
  - Infusion related reaction [None]

NARRATIVE: CASE EVENT DATE: 20190305
